FAERS Safety Report 6645143-7 (Version None)
Quarter: 2010Q1

REPORT INFORMATION
  Report Type: 
  Country: None (occurrence: None)
  Receive Date: 20100308
  Receipt Date: 20100225
  Transmission Date: 20100710
  Serious: No
  Sender: FDA-Public Use
  Company Number: 2010-00294

PATIENT
  Sex: Female

DRUGS (2)
  1. ZICAM COLD REMEDY GEL SWABS [Suspect]
  2. ZICAM ALLERGY RELIEF GEL SWABS [Suspect]

REACTIONS (2)
  - ANOSMIA [None]
  - BLISTER [None]
